FAERS Safety Report 13082535 (Version 1)
Quarter: 2017Q1

REPORT INFORMATION
  Report Type: Spontaneous
  Country: NL (occurrence: NL)
  Receive Date: 20170103
  Receipt Date: 20170103
  Transmission Date: 20170428
  Serious: Yes (Hospitalization)
  Sender: FDA-Public Use
  Company Number: NL-BION-005844

PATIENT
  Age: 70 Year
  Sex: Female

DRUGS (3)
  1. EPINEPHRINE. [Suspect]
     Active Substance: EPINEPHRINE
     Indication: LOCAL ANAESTHESIA
     Dosage: 1: 100,000 UNITS
  2. CARBASALATE [Concomitant]
     Active Substance: CARBASPIRIN
     Indication: CEREBROVASCULAR ACCIDENT
  3. LIDOCAINE HYDROCHLORIDE. [Suspect]
     Active Substance: LIDOCAINE HYDROCHLORIDE
     Indication: LOCAL ANAESTHESIA
     Dosage: INJECTED 1% LIDOCAINE SOLUTION WITH ADRENALINE (1: 100,000 UNITS)

REACTIONS (1)
  - Extremity necrosis [Recovered/Resolved]
